FAERS Safety Report 5399054-8 (Version None)
Quarter: 2007Q3

REPORT INFORMATION
  Report Type: 
  Country: None (occurrence: None)
  Receive Date: 20070727
  Receipt Date: 20070718
  Transmission Date: 20080115
  Serious: Yes (Other)
  Sender: FDA-Public Use
  Company Number: GB-AVENTIS-200716682GDDC

PATIENT
  Age: 59 Year
  Sex: Male
  Weight: 73 kg

DRUGS (2)
  1. METRONIDAZOLE HCL [Suspect]
     Route: 048
     Dates: start: 20070222, end: 20070228
  2. CEPHALEXIN [Concomitant]
     Route: 048
     Dates: start: 20070222, end: 20070228

REACTIONS (1)
  - PERONEAL NERVE PALSY [None]
